FAERS Safety Report 21375989 (Version 3)
Quarter: 2022Q4

REPORT INFORMATION
  Report Type: Spontaneous
  Country: FR (occurrence: FR)
  Receive Date: 20220926
  Receipt Date: 20221124
  Transmission Date: 20230113
  Serious: Yes (Hospitalization)
  Sender: FDA-Public Use
  Company Number: FR-AFSSAPS-AN20222027

PATIENT
  Age: 73 Year
  Sex: Male
  Weight: 61 kg

DRUGS (13)
  1. DARZALEX [Suspect]
     Active Substance: DARATUMUMAB
     Indication: Plasma cell myeloma
     Dosage: PENDANT 3 SEMAINES
     Route: 058
     Dates: start: 20220802, end: 20220816
  2. REVLIMID [Suspect]
     Active Substance: LENALIDOMIDE
     Indication: Plasma cell myeloma
     Dosage: 21 JOURS SUR 28
     Route: 048
     Dates: start: 20220802, end: 20220823
  3. DEXAMETHASONE ACETATE [Suspect]
     Active Substance: DEXAMETHASONE ACETATE
     Indication: Plasma cell myeloma
     Route: 048
     Dates: start: 20220802, end: 20220816
  4. VALACYCLOVIR HYDROCHLORIDE [Concomitant]
     Active Substance: VALACYCLOVIR HYDROCHLORIDE
     Indication: Product used for unknown indication
     Route: 048
  5. CETIRIZINE HYDROCHLORIDE [Concomitant]
     Active Substance: CETIRIZINE HYDROCHLORIDE
     Indication: Product used for unknown indication
     Route: 048
  6. KARDEGIC [Concomitant]
     Active Substance: ASPIRIN DL-LYSINE
     Indication: Product used for unknown indication
     Dosage: 75 MG POWDER FOR ORAL SOLUTION IN SACHET-DOSE
     Route: 048
  7. LEVOLEUCOVORIN DISODIUM [Concomitant]
     Active Substance: LEVOLEUCOVORIN DISODIUM
     Indication: Product used for unknown indication
     Route: 048
  8. SITAGLIPTIN [Concomitant]
     Active Substance: SITAGLIPTIN
     Indication: Product used for unknown indication
     Route: 048
  9. ERYTHROPOIETIN [Concomitant]
     Active Substance: ERYTHROPOIETIN
     Indication: Product used for unknown indication
     Dosage: 3000 IU/0.75 ML, SOLUTION FOR INJECTION IN PRE-FILLED SYRINGE
     Route: 058
  10. METFORMIN HYDROCHLORIDE [Concomitant]
     Active Substance: METFORMIN HYDROCHLORIDE
     Indication: Product used for unknown indication
     Route: 048
  11. LEVOTHYROXINE SODIUM [Concomitant]
     Active Substance: LEVOTHYROXINE SODIUM
     Indication: Product used for unknown indication
     Route: 048
  12. BACTRIM [Concomitant]
     Active Substance: SULFAMETHOXAZOLE\TRIMETHOPRIM
     Indication: Product used for unknown indication
     Dosage: 3 FOIS PAR SEMAINE
     Route: 048
  13. TRAMADOL HYDROCHLORIDE [Concomitant]
     Active Substance: TRAMADOL HYDROCHLORIDE
     Indication: Analgesic intervention supportive therapy
     Dosage: SI DOULEURS
     Route: 048
     Dates: start: 20220802

REACTIONS (2)
  - Aplasia [Recovered/Resolved]
  - Septic shock [Recovered/Resolved]

NARRATIVE: CASE EVENT DATE: 20220818
